FAERS Safety Report 20009115 (Version 2)
Quarter: 2022Q1

REPORT INFORMATION
  Report Type: Report from Study
  Country: FR (occurrence: None)
  Receive Date: 20211029
  Receipt Date: 20220103
  Transmission Date: 20220423
  Serious: Yes (Death, Disabling)
  Sender: FDA-Public Use
  Company Number: FR-ROCHE-2946209

PATIENT
  Age: 65 Year
  Sex: Male
  Weight: 43 kg

DRUGS (4)
  1. BEVACIZUMAB [Suspect]
     Active Substance: BEVACIZUMAB
     Indication: Neuroendocrine carcinoma
     Route: 042
     Dates: start: 20210608, end: 20210902
  2. FLUOROURACIL [Concomitant]
     Active Substance: FLUOROURACIL
     Route: 042
     Dates: start: 20210608, end: 20210902
  3. IRINOTECAN [Concomitant]
     Active Substance: IRINOTECAN
     Route: 042
     Dates: start: 20210608, end: 20210902
  4. LEUCOVORIN CALCIUM [Concomitant]
     Active Substance: LEUCOVORIN CALCIUM
     Route: 042
     Dates: start: 20210608, end: 20210902

REACTIONS (1)
  - Asthenia [Fatal]

NARRATIVE: CASE EVENT DATE: 20210902
